FAERS Safety Report 21228488 (Version 1)
Quarter: 2022Q3

REPORT INFORMATION
  Report Type: Spontaneous
  Country: US (occurrence: US)
  Receive Date: 20220818
  Receipt Date: 20220818
  Transmission Date: 20221026
  Serious: Yes (Other)
  Sender: FDA-Public Use
  Company Number: US-MYLANLABS-2022M1086519

PATIENT
  Age: 3 Decade
  Sex: Male

DRUGS (25)
  1. CLOZAPINE [Suspect]
     Active Substance: CLOZAPINE
     Indication: Psychotic symptom
     Dosage: 25 MILLIGRAM, FOR 3 DAYS
     Route: 065
     Dates: start: 2019, end: 2019
  2. CLOZAPINE [Suspect]
     Active Substance: CLOZAPINE
     Indication: Schizophrenia
     Dosage: 50 MILLIGRAM, FOR 3 DAYS
     Route: 065
     Dates: start: 2019, end: 2019
  3. CLOZAPINE [Suspect]
     Active Substance: CLOZAPINE
     Dosage: 75 MILLIGRAM, FOR 3 DAYS
     Route: 065
     Dates: start: 2019, end: 2019
  4. CLOZAPINE [Suspect]
     Active Substance: CLOZAPINE
     Dosage: 100 MILLIGRAM, FOR 3 DAYS
     Route: 065
     Dates: start: 2019, end: 2019
  5. CLOZAPINE [Suspect]
     Active Substance: CLOZAPINE
     Dosage: 150 MILLIGRAM, FOR 3 DAYS
     Route: 065
     Dates: start: 2019
  6. QUETIAPINE [Suspect]
     Active Substance: QUETIAPINE
     Indication: Psychotic symptom
     Dosage: 800 MILLIGRAM, TITRATED DOSE; INITIAL DOSE NOT STATED
     Route: 065
     Dates: start: 201906, end: 201908
  7. QUETIAPINE [Suspect]
     Active Substance: QUETIAPINE
     Indication: Schizophrenia
  8. RISPERIDONE [Suspect]
     Active Substance: RISPERIDONE
     Indication: Aggression
     Dosage: 0.5 MILLIGRAM, BID
     Route: 065
     Dates: start: 2019, end: 2019
  9. RISPERIDONE [Suspect]
     Active Substance: RISPERIDONE
     Indication: Psychotic symptom
     Dosage: 4 MILLIGRAM
     Route: 065
     Dates: start: 2019
  10. RISPERIDONE [Suspect]
     Active Substance: RISPERIDONE
     Indication: Schizophrenia
  11. LORAZEPAM [Concomitant]
     Active Substance: LORAZEPAM
     Indication: Catatonia
     Dosage: 1 MILLIGRAM, THREE TIMES DAILY; TITRATED DOSE; INITIAL DOSE NOT STATED
     Route: 065
     Dates: start: 2019
  12. LORAZEPAM [Concomitant]
     Active Substance: LORAZEPAM
     Dosage: 2 MILLIGRAM, THREE TIMES DAILY
     Route: 065
     Dates: start: 2019
  13. LORAZEPAM [Concomitant]
     Active Substance: LORAZEPAM
     Dosage: 3 MILLIGRAM, THREE TIMES DAILY
     Route: 065
     Dates: start: 2019
  14. LORAZEPAM [Concomitant]
     Active Substance: LORAZEPAM
     Dosage: 5 MILLIGRAM, THREE TIMES DAILY
     Route: 065
     Dates: start: 2019
  15. LORAZEPAM [Concomitant]
     Active Substance: LORAZEPAM
     Dosage: 6 MILLIGRAM, THREE TIMES DAILY
     Route: 065
     Dates: start: 2019
  16. LORAZEPAM [Concomitant]
     Active Substance: LORAZEPAM
     Dosage: 7 MILLIGRAM, THREE TIMES DAILY
     Route: 065
     Dates: start: 2019
  17. LORAZEPAM [Concomitant]
     Active Substance: LORAZEPAM
     Dosage: 8 MILLIGRAM, THREE TIMES DAILY
     Route: 065
     Dates: start: 2019
  18. ESCITALOPRAM [Concomitant]
     Active Substance: ESCITALOPRAM OXALATE
     Indication: Major depression
     Dosage: 10 MILLIGRAM
     Route: 065
     Dates: start: 2019
  19. OLANZAPINE [Concomitant]
     Active Substance: OLANZAPINE
     Indication: Psychotic symptom
     Dosage: 2.5 MILLIGRAM, ORALLY DISINTEGRATING TABLET
     Route: 048
     Dates: start: 2019, end: 2019
  20. OLANZAPINE [Concomitant]
     Active Substance: OLANZAPINE
     Indication: Schizophrenia
     Dosage: 5 MILLIGRAM, PM, NIGHTLY; ORALLY DISINTEGRATING TABLET
     Route: 048
     Dates: start: 2019, end: 2019
  21. OLANZAPINE [Concomitant]
     Active Substance: OLANZAPINE
     Dosage: 7.5 MILLIGRAM, PM, NIGHTLY; ORALLY DISINTEGRATING TABLET
     Route: 048
     Dates: start: 2019, end: 2019
  22. OLANZAPINE [Concomitant]
     Active Substance: OLANZAPINE
     Dosage: 10 MILLIGRAM, PM, NIGHTLY; ORALLY DISINTEGRATING TABLET
     Route: 048
     Dates: start: 2019, end: 2019
  23. OLANZAPINE [Concomitant]
     Active Substance: OLANZAPINE
     Dosage: 15 MILLIGRAM, PM, NIGHTLY; ORALLY DISINTEGRATING TABLET
     Route: 048
     Dates: start: 2019, end: 2019
  24. OLANZAPINE [Concomitant]
     Active Substance: OLANZAPINE
     Dosage: 20 MILLIGRAM, PM, NIGHTLY; ORALLY DISINTEGRATING TABLET
     Route: 048
     Dates: start: 2019
  25. LEVOTHYROXINE [Concomitant]
     Active Substance: LEVOTHYROXINE
     Indication: Hypothyroidism
     Dosage: UNK
     Route: 065

REACTIONS (4)
  - Catatonia [Recovered/Resolved]
  - Condition aggravated [Recovered/Resolved]
  - Myocarditis [Unknown]
  - Drug ineffective [Unknown]

NARRATIVE: CASE EVENT DATE: 20190101
